FAERS Safety Report 8833810 (Version 2)
Quarter: 2013Q2

REPORT INFORMATION
  Report Type: Spontaneous
  Country: US (occurrence: US)
  Receive Date: 20121011
  Receipt Date: 20130603
  Transmission Date: 20140414
  Serious: Yes (Other)
  Sender: FDA-Public Use
  Company Number: US-SANOFI-AVENTIS-2012SA064393

PATIENT
  Age: 61 Year
  Sex: Female
  Weight: 86.12 kg

DRUGS (6)
  1. LANTUS SOLOSTAR [Suspect]
     Indication: TYPE 2 DIABETES MELLITUS
     Route: 058
     Dates: start: 20110114, end: 20120904
  2. SOLOSTAR [Suspect]
     Indication: TYPE 2 DIABETES MELLITUS
     Dates: start: 20110114, end: 20120904
  3. METOPROLOL [Concomitant]
     Indication: CARDIAC DISORDER
     Dates: start: 2005
  4. LISINOPRIL [Concomitant]
     Indication: BLOOD PRESSURE ABNORMAL
     Route: 048
     Dates: start: 2008
  5. TRAMADOL [Concomitant]
     Dosage: TWO TABLETS TWICE
     Route: 048
     Dates: start: 2003
  6. ALL OTHER THERAPEUTIC PRODUCTS [Concomitant]
     Indication: DIABETES MELLITUS
     Dosage: 5-1000MG
     Dates: start: 2011

REACTIONS (8)
  - Renal failure [Unknown]
  - Drug hypersensitivity [Unknown]
  - Urticaria [Unknown]
  - Rash [Unknown]
  - Pruritus [Unknown]
  - Scar [Unknown]
  - Blood pressure increased [Unknown]
  - Dyspnoea [Unknown]
